FAERS Safety Report 8058471-8 (Version None)
Quarter: 2012Q1

REPORT INFORMATION
  Report Type: 
  Country: None (occurrence: None)
  Receive Date: 20120120
  Receipt Date: 20120118
  Transmission Date: 20120608
  Serious: Yes (Other)
  Sender: FDA-Public Use
  Company Number: CH-PFIZER INC-2012014073

PATIENT
  Age: 32 Year
  Sex: Female

DRUGS (2)
  1. ATORVASTATIN CALCIUM [Suspect]
     Indication: HYPERLIPIDAEMIA
     Dosage: 40 MG DAILY
     Dates: end: 20110901
  2. ELEVIT PRONATAL [Concomitant]
     Dosage: UNK
     Dates: start: 20110720

REACTIONS (2)
  - PRE-ECLAMPSIA [None]
  - OLIGOHYDRAMNIOS [None]
